FAERS Safety Report 6328408-8 (Version None)
Quarter: 2009Q3

REPORT INFORMATION
  Report Type: 
  Country: None (occurrence: None)
  Receive Date: 20090825
  Receipt Date: 20090324
  Transmission Date: 20100115
  Serious: No
  Sender: FDA-Public Use
  Company Number: US-ABBOTT-09P-163-0564663-00

PATIENT
  Sex: Female
  Weight: 104.42 kg

DRUGS (2)
  1. SYNTHROID [Suspect]
     Indication: DRUG USE FOR UNKNOWN INDICATION
     Dates: start: 20090101
  2. SYNTHROID [Suspect]

REACTIONS (1)
  - PETIT MAL EPILEPSY [None]
